FAERS Safety Report 5704394-6 (Version None)
Quarter: 2008Q2

REPORT INFORMATION
  Report Type: 
  Country: None (occurrence: None)
  Receive Date: 20080414
  Receipt Date: 20080403
  Transmission Date: 20081010
  Serious: Yes (Other)
  Sender: FDA-Public Use
  Company Number: B0435739A

PATIENT
  Age: 30 Year
  Sex: Male

DRUGS (9)
  1. BLINDED TRIAL MEDICATION [Suspect]
     Indication: HIV INFECTION
     Route: 048
     Dates: start: 20060615
  2. COMBIVIR [Suspect]
     Indication: HIV INFECTION
     Dosage: 1TAB TWICE PER DAY
     Route: 048
  3. EFAVIRENZ [Suspect]
     Indication: HIV INFECTION
     Dosage: 600MG PER DAY
     Route: 048
  4. PYRAZINAMIDE [Suspect]
     Dates: end: 20060630
  5. ETHAMBUTOL HYDROCHLORIDE [Suspect]
  6. RIFAMPICIN [Suspect]
     Dates: end: 20060630
  7. ISONIAZID [Suspect]
     Dates: end: 20060630
  8. DEXAMETHASONE [Concomitant]
  9. SILYBEAN [Concomitant]

REACTIONS (2)
  - FATIGUE [None]
  - HEPATITIS [None]
